FAERS Safety Report 15122539 (Version 4)
Quarter: 2025Q4

REPORT INFORMATION
  Report Type: Spontaneous
  Country: EU (occurrence: EU)
  Receive Date: 20180709
  Receipt Date: 20251027
  Transmission Date: 20260118
  Serious: Yes (Other)
  Sender: MYLAN
  Company Number: None

PATIENT
  Age: 74 Year
  Sex: Male

DRUGS (48)
  1. ARIPIPRAZOLE [Interacting]
     Active Substance: ARIPIPRAZOLE
     Indication: Product used for unknown indication
     Dosage: UNK
  2. ARIPIPRAZOLE [Interacting]
     Active Substance: ARIPIPRAZOLE
     Dosage: UNK
     Route: 065
  3. ARIPIPRAZOLE [Interacting]
     Active Substance: ARIPIPRAZOLE
     Dosage: UNK
     Route: 065
  4. ARIPIPRAZOLE [Interacting]
     Active Substance: ARIPIPRAZOLE
     Dosage: UNK
  5. QUETIAPINE [Interacting]
     Active Substance: QUETIAPINE
     Indication: Product used for unknown indication
     Dosage: 500 MG, QD
  6. QUETIAPINE [Interacting]
     Active Substance: QUETIAPINE
     Dosage: 500 MG, QD
     Route: 065
  7. QUETIAPINE [Interacting]
     Active Substance: QUETIAPINE
     Dosage: 500 MG, QD
     Route: 065
  8. QUETIAPINE [Interacting]
     Active Substance: QUETIAPINE
     Dosage: 500 MG, QD
  9. QUETIAPINE [Interacting]
     Active Substance: QUETIAPINE
     Dosage: 50 MG, QD
  10. QUETIAPINE [Interacting]
     Active Substance: QUETIAPINE
     Dosage: 50 MG, QD
     Route: 065
  11. QUETIAPINE [Interacting]
     Active Substance: QUETIAPINE
     Dosage: 50 MG, QD
  12. QUETIAPINE [Interacting]
     Active Substance: QUETIAPINE
     Dosage: 50 MG, QD
     Route: 065
  13. QUETIAPINE [Interacting]
     Active Substance: QUETIAPINE
     Dosage: UNK
     Route: 065
  14. QUETIAPINE [Interacting]
     Active Substance: QUETIAPINE
     Dosage: UNK
     Route: 065
  15. QUETIAPINE [Interacting]
     Active Substance: QUETIAPINE
     Dosage: UNK
  16. QUETIAPINE [Interacting]
     Active Substance: QUETIAPINE
     Dosage: UNK
  17. VALPROIC ACID [Interacting]
     Active Substance: VALPROIC ACID
     Indication: Product used for unknown indication
     Dosage: 2400 MG, QD
  18. VALPROIC ACID [Interacting]
     Active Substance: VALPROIC ACID
     Dosage: 2400 MG, QD
  19. VALPROIC ACID [Interacting]
     Active Substance: VALPROIC ACID
     Dosage: 2400 MG, QD
     Route: 065
  20. VALPROIC ACID [Interacting]
     Active Substance: VALPROIC ACID
     Dosage: 2400 MG, QD
     Route: 065
  21. VALPROIC ACID [Interacting]
     Active Substance: VALPROIC ACID
     Dosage: 900 MG, QD
     Route: 065
  22. VALPROIC ACID [Interacting]
     Active Substance: VALPROIC ACID
     Dosage: 900 MG, QD
     Route: 065
  23. VALPROIC ACID [Interacting]
     Active Substance: VALPROIC ACID
     Dosage: 900 MG, QD
  24. VALPROIC ACID [Interacting]
     Active Substance: VALPROIC ACID
     Dosage: 900 MG, QD
  25. VALPROIC ACID [Interacting]
     Active Substance: VALPROIC ACID
     Dosage: 1600 MG, QD
     Route: 065
  26. VALPROIC ACID [Interacting]
     Active Substance: VALPROIC ACID
     Dosage: 1600 MG, QD
     Route: 065
  27. VALPROIC ACID [Interacting]
     Active Substance: VALPROIC ACID
     Dosage: 1600 MG, QD
  28. VALPROIC ACID [Interacting]
     Active Substance: VALPROIC ACID
     Dosage: 1600 MG, QD
  29. VALPROIC ACID [Interacting]
     Active Substance: VALPROIC ACID
     Dosage: UNK
  30. VALPROIC ACID [Interacting]
     Active Substance: VALPROIC ACID
     Dosage: UNK
  31. VALPROIC ACID [Interacting]
     Active Substance: VALPROIC ACID
     Dosage: UNK
     Route: 065
  32. VALPROIC ACID [Interacting]
     Active Substance: VALPROIC ACID
     Dosage: UNK
     Route: 065
  33. LORAZEPAM [Interacting]
     Active Substance: LORAZEPAM
     Indication: Product used for unknown indication
     Dosage: UNK
  34. LORAZEPAM [Interacting]
     Active Substance: LORAZEPAM
     Dosage: UNK
     Route: 065
  35. LORAZEPAM [Interacting]
     Active Substance: LORAZEPAM
     Dosage: UNK
     Route: 065
  36. LORAZEPAM [Interacting]
     Active Substance: LORAZEPAM
     Dosage: UNK
  37. LITHIUM [Concomitant]
     Active Substance: LITHIUM
     Indication: Product used for unknown indication
     Dosage: UNK
  38. LITHIUM [Concomitant]
     Active Substance: LITHIUM
     Dosage: UNK
     Route: 065
  39. LITHIUM [Concomitant]
     Active Substance: LITHIUM
     Dosage: UNK
     Route: 065
  40. LITHIUM [Concomitant]
     Active Substance: LITHIUM
     Dosage: UNK
  41. FINASTERIDE [Concomitant]
     Active Substance: FINASTERIDE
     Indication: Product used for unknown indication
     Dosage: UNK
  42. FINASTERIDE [Concomitant]
     Active Substance: FINASTERIDE
     Dosage: UNK
     Route: 065
  43. FINASTERIDE [Concomitant]
     Active Substance: FINASTERIDE
     Dosage: UNK
     Route: 065
  44. FINASTERIDE [Concomitant]
     Active Substance: FINASTERIDE
     Dosage: UNK
  45. ALFUZOSIN [Concomitant]
     Active Substance: ALFUZOSIN
     Indication: Product used for unknown indication
     Dosage: UNK
  46. ALFUZOSIN [Concomitant]
     Active Substance: ALFUZOSIN
     Dosage: UNK
     Route: 065
  47. ALFUZOSIN [Concomitant]
     Active Substance: ALFUZOSIN
     Dosage: UNK
     Route: 065
  48. ALFUZOSIN [Concomitant]
     Active Substance: ALFUZOSIN
     Dosage: UNK

REACTIONS (7)
  - Depressed level of consciousness [Recovered/Resolved]
  - Coma [Recovered/Resolved]
  - Altered state of consciousness [Recovered/Resolved]
  - Blood thyroid stimulating hormone decreased [Recovered/Resolved]
  - Parkinsonism [Recovered/Resolved]
  - Dehydration [Unknown]
  - Drug interaction [Unknown]
